FAERS Safety Report 9744140 (Version 1)
Quarter: 2013Q4

REPORT INFORMATION
  Report Type: Spontaneous
  Country: US (occurrence: US)
  Receive Date: 20131210
  Receipt Date: 20131210
  Transmission Date: 20140711
  Serious: Yes (Hospitalization, Other)
  Sender: FDA-Public Use
  Company Number: US-ACTAVIS-2013-22127

PATIENT
  Age: 24 Year
  Sex: Male

DRUGS (1)
  1. PHENTERMINE [Suspect]
     Indication: WEIGHT DECREASED
     Dosage: 3 PILLS OVER THE PRIOR WEEK
     Route: 048

REACTIONS (2)
  - Pneumomediastinum [Recovering/Resolving]
  - Intentional drug misuse [Recovering/Resolving]
